FAERS Safety Report 7783450-5 (Version None)
Quarter: 2011Q3

REPORT INFORMATION
  Report Type: 
  Country: None (occurrence: None)
  Receive Date: 20110928
  Receipt Date: 20110928
  Transmission Date: 20111222
  Serious: Yes (Other)
  Sender: FDA-Public Use
  Company Number: None

PATIENT
  Sex: Male
  Weight: 61.234 kg

DRUGS (1)
  1. MIRAPEX [Suspect]
     Indication: RESTLESS LEGS SYNDROME
     Dosage: 1 TABLET
     Dates: start: 19990101, end: 20071101

REACTIONS (7)
  - HOMELESS [None]
  - QUALITY OF LIFE DECREASED [None]
  - ECONOMIC PROBLEM [None]
  - DIVORCED [None]
  - FAMILY STRESS [None]
  - LIBIDO INCREASED [None]
  - LOSS OF EMPLOYMENT [None]
